FAERS Safety Report 9288912 (Version 1)
Quarter: 2013Q2

REPORT INFORMATION
  Report Type: Spontaneous
  Country: CA (occurrence: CA)
  Receive Date: 20130514
  Receipt Date: 20130514
  Transmission Date: 20140414
  Serious: Yes (Death, Hospitalization)
  Sender: FDA-Public Use
  Company Number: CA-GLAXOSMITHKLINE-A1020074A

PATIENT
  Age: 59 Year
  Sex: Male

DRUGS (6)
  1. VOTRIENT [Suspect]
     Indication: RENAL CANCER METASTATIC
     Dosage: 800MG PER DAY
     Route: 048
     Dates: start: 20130410
  2. CRESTOR [Concomitant]
  3. METOPROLOL [Concomitant]
  4. HYDROMORPH CONTIN [Concomitant]
  5. AVAPRO [Concomitant]
  6. METFORMIN [Concomitant]

REACTIONS (8)
  - Nausea [Unknown]
  - Vomiting [Unknown]
  - Retching [Unknown]
  - Vomiting [Unknown]
  - Blood pressure increased [Not Recovered/Not Resolved]
  - Malignant neoplasm progression [Unknown]
  - Palliative care [Unknown]
  - Death [Fatal]
